FAERS Safety Report 11753829 (Version 1)
Quarter: 2015Q4

REPORT INFORMATION
  Report Type: Spontaneous
  Country: US (occurrence: None)
  Receive Date: 20151118
  Receipt Date: 20151118
  Transmission Date: 20160304
  Serious: No
  Sender: FDA-Public Use
  Company Number: None

PATIENT
  Age: 81 Year
  Sex: Male

DRUGS (5)
  1. SINEMET [Concomitant]
     Active Substance: CARBIDOPA\LEVODOPA
  2. ENTACAPONE. [Concomitant]
     Active Substance: ENTACAPONE
  3. DOCUSATE [Concomitant]
     Active Substance: DOCUSATE
  4. SENNA LAXATIVE [Concomitant]
     Active Substance: SENNOSIDES A AND B
  5. NORTHERA [Suspect]
     Active Substance: DROXIDOPA
     Indication: ORTHOSTATIC HYPOTENSION
     Route: 048
     Dates: start: 20150820

REACTIONS (2)
  - Memory impairment [None]
  - Drug dose omission [None]
